FAERS Safety Report 7807590-7 (Version None)
Quarter: 2011Q4

REPORT INFORMATION
  Report Type: 
  Country: None (occurrence: None)
  Receive Date: 20111011
  Receipt Date: 20111004
  Transmission Date: 20120403
  Serious: Yes (Other)
  Sender: FDA-Public Use
  Company Number: DE-ROXANE LABORATORIES, INC.-2011-RO-01402RO

PATIENT
  Age: 37 Year

DRUGS (2)
  1. CLARITHROMYCIN [Suspect]
     Route: 048
  2. CLARITHROMYCIN [Suspect]
     Indication: RESPIRATORY TRACT INFECTION

REACTIONS (1)
  - DRUG ERUPTION [None]
